FAERS Safety Report 6704020-3 (Version None)
Quarter: 2010Q2

REPORT INFORMATION
  Report Type: 
  Country: None (occurrence: None)
  Receive Date: 20100428
  Receipt Date: 20100413
  Transmission Date: 20101027
  Serious: Yes (Disabling)
  Sender: FDA-Public Use
  Company Number: 2010-0733

PATIENT
  Age: 48 Year
  Sex: Male
  Weight: 60 kg

DRUGS (1)
  1. DYSPORT [Suspect]
     Indication: MYOFASCIAL PAIN SYNDROME
     Dosage: 150 UNITS (150 UNITS, SINGLE CYCLE), INTRAMUSCULAR
     Route: 030
     Dates: start: 20091120, end: 20091120

REACTIONS (3)
  - ASTHENIA [None]
  - DYSPHAGIA [None]
  - OFF LABEL USE [None]
